FAERS Safety Report 10537661 (Version 1)
Quarter: 2014Q4

REPORT INFORMATION
  Report Type: Spontaneous
  Country: GB (occurrence: GB)
  Receive Date: 20141023
  Receipt Date: 20141023
  Transmission Date: 20150529
  Serious: Yes (Hospitalization)
  Sender: FDA-Public Use
  Company Number: GB-MYLANLABS-2014M1007764

PATIENT

DRUGS (2)
  1. ANAPEN                             /00003901/ [Suspect]
     Active Substance: EPINEPHRINE
     Indication: FOOD ALLERGY
  2. EPINEPHRINE. [Suspect]
     Active Substance: EPINEPHRINE
     Indication: FOOD ALLERGY
     Route: 030

REACTIONS (2)
  - Wrong technique in drug usage process [Unknown]
  - Device failure [Unknown]
